FAERS Safety Report 5327137-7 (Version None)
Quarter: 2007Q2

REPORT INFORMATION
  Report Type: 
  Country: None (occurrence: None)
  Receive Date: 20070517
  Receipt Date: 20070515
  Transmission Date: 20071010
  Serious: Yes (Life-Threatening, Other)
  Sender: FDA-Public Use
  Company Number: DE-BAYER-200710469BVD

PATIENT
  Age: 73 Year
  Sex: Male

DRUGS (13)
  1. MOXIFLOXACIN HCL [Suspect]
     Indication: CHOLECYSTITIS
     Route: 042
     Dates: start: 20070411, end: 20070413
  2. PROSCAR [Concomitant]
     Route: 048
  3. MONO MACK [Concomitant]
     Route: 048
  4. METOPROLOL SUCCINATE [Concomitant]
     Dosage: TOTAL DAILY DOSE: 95 MG  UNIT DOSE: 47.5 MG
     Route: 048
     Dates: end: 20070401
  5. METOPROLOL SUCCINATE [Concomitant]
     Dosage: TOTAL DAILY DOSE: 190 MG  UNIT DOSE: 95 MG
     Route: 048
     Dates: start: 20070401
  6. ASPIRIN [Concomitant]
     Dosage: TOTAL DAILY DOSE: 100 MG  UNIT DOSE: 100 MG
     Route: 048
  7. DIOVAN [Concomitant]
     Dosage: TOTAL DAILY DOSE: 120 MG  UNIT DOSE: 80 MG
     Route: 048
  8. INDAPAMIDE [Concomitant]
     Dosage: TOTAL DAILY DOSE: 1.5 MG  UNIT DOSE: 1.5 MG
     Route: 048
     Dates: end: 20070401
  9. SIMVASTATIN [Concomitant]
     Dosage: TOTAL DAILY DOSE: 10 MG  UNIT DOSE: 10 MG
     Route: 048
  10. JARSIN [Concomitant]
     Dosage: TOTAL DAILY DOSE: 600 MG  UNIT DOSE: 300 MG
     Route: 048
     Dates: end: 20070401
  11. RIFUN [Concomitant]
     Dosage: TOTAL DAILY DOSE: 40 MG  UNIT DOSE: 20 MG
     Route: 048
  12. CELEBREX [Concomitant]
     Dosage: TOTAL DAILY DOSE: 200 MG  UNIT DOSE: 200 MG
     Route: 048
  13. ZOPICLON [Concomitant]
     Dosage: TOTAL DAILY DOSE: 3.75 MG  UNIT DOSE: 3.75 MG
     Route: 048

REACTIONS (7)
  - ATRIAL FIBRILLATION [None]
  - CHOLECYSTITIS [None]
  - GASTRITIS [None]
  - HYPERTENSION [None]
  - INFLAMMATION [None]
  - PAIN [None]
  - PYREXIA [None]
